FAERS Safety Report 11221709 (Version 1)
Quarter: 2015Q2

REPORT INFORMATION
  Report Type: Spontaneous
  Country: GB (occurrence: GB)
  Receive Date: 20150626
  Receipt Date: 20150626
  Transmission Date: 20150821
  Serious: Yes (Life-Threatening, Hospitalization)
  Sender: FDA-Public Use
  Company Number: GB-ASTRAZENECA-2015SE61685

PATIENT
  Age: 67 Year
  Sex: Male

DRUGS (2)
  1. BRILIQUE [Suspect]
     Active Substance: TICAGRELOR
     Route: 048
     Dates: start: 20150106
  2. IVABRADINE [Concomitant]
     Active Substance: IVABRADINE

REACTIONS (2)
  - Circulatory collapse [Unknown]
  - Myocardial infarction [Unknown]
